FAERS Safety Report 10281798 (Version 1)
Quarter: 2014Q3

REPORT INFORMATION
  Report Type: Spontaneous
  Country: FR (occurrence: FR)
  Receive Date: 20140707
  Receipt Date: 20140707
  Transmission Date: 20150326
  Serious: Yes (Death)
  Sender: FDA-Public Use
  Company Number: FR-TEVA-491813ISR

PATIENT
  Age: 70 Year
  Sex: Female

DRUGS (12)
  1. LYRICA [Concomitant]
     Active Substance: PREGABALIN
     Dosage: 450 MILLIGRAM DAILY;
     Dates: end: 201406
  2. INNOHEP [Concomitant]
     Active Substance: TINZAPARIN SODIUM
     Dates: start: 201310, end: 201406
  3. AMIODARONE MYLAN [Suspect]
     Active Substance: AMIODARONE
     Indication: VENTRICULAR EXTRASYSTOLES
     Dosage: .5 DOSAGE FORMS DAILY;
     Route: 048
     Dates: end: 20140603
  4. TELMISARTAN. [Concomitant]
     Active Substance: TELMISARTAN
     Dosage: 40 MILLIGRAM DAILY;
     Dates: end: 201406
  5. SOLUPRED [Concomitant]
     Active Substance: PREDNISOLONE
     Dates: end: 20140511
  6. COTRIMOXAZOLE [Suspect]
     Active Substance: SULFAMETHOXAZOLE\TRIMETHOPRIM
     Indication: STAPHYLOCOCCAL INFECTION
     Dosage: 1 TABLET DAILY;
     Route: 048
     Dates: start: 20140324, end: 201406
  7. MEDROL 16MG [Concomitant]
     Dosage: 2 DOSAGE FORMS DAILY;
     Dates: start: 20140512, end: 201406
  8. LASILIX [Concomitant]
     Active Substance: FUROSEMIDE
  9. LEVOTHYROX [Concomitant]
     Active Substance: LEVOTHYROXINE
     Dates: end: 201406
  10. INEXIUM 40MG [Concomitant]
     Active Substance: ESOMEPRAZOLE
     Dates: start: 2014, end: 201406
  11. HALAVEN [Suspect]
     Active Substance: ERIBULIN MESYLATE
     Indication: BREAST CANCER METASTATIC
     Route: 042
     Dates: start: 20140323, end: 20140521
  12. DIFFU K [Concomitant]
     Active Substance: POTASSIUM CHLORIDE
     Dates: end: 201406

REACTIONS (1)
  - Mixed liver injury [Fatal]

NARRATIVE: CASE EVENT DATE: 20140506
